FAERS Safety Report 4585558-4 (Version None)
Quarter: 2005Q1

REPORT INFORMATION
  Report Type: 
  Country: None (occurrence: None)
  Receive Date: 20050217
  Receipt Date: 20050208
  Transmission Date: 20050727
  Serious: Yes (Hospitalization)
  Sender: FDA-Public Use
  Company Number: FRWYE409308FEB05

PATIENT
  Age: 46 Year
  Sex: Female

DRUGS (6)
  1. ENBREL [Suspect]
     Indication: RHEUMATOID ARTHRITIS
     Dosage: UNKNOWN
     Route: 058
     Dates: start: 20040515, end: 20040715
  2. DI-ANTALVIC [Concomitant]
     Route: 048
  3. CORTANCYL [Concomitant]
     Route: 048
  4. ADVIL [Concomitant]
     Dosage: UNKNOWN
  5. LEXOMIL [Concomitant]
     Dosage: UNKNOWN
  6. PAROXETINE HYDROCHLORIDE [Concomitant]
     Route: 048

REACTIONS (1)
  - SYSTEMIC LUPUS ERYTHEMATOSUS [None]
